FAERS Safety Report 5463228-8 (Version None)
Quarter: 2007Q3

REPORT INFORMATION
  Report Type: 
  Country: None (occurrence: None)
  Receive Date: 20070920
  Receipt Date: 20070914
  Transmission Date: 20080115
  Serious: Yes (Other)
  Sender: FDA-Public Use
  Company Number: B0487752A

PATIENT
  Age: 64 Year
  Sex: Male

DRUGS (4)
  1. SERETIDE [Suspect]
     Indication: ASTHMA
     Route: 055
     Dates: start: 20000601, end: 20070101
  2. SALBUTAMOL [Suspect]
     Indication: ASTHMA
     Route: 055
     Dates: start: 19980101, end: 20070101
  3. THEOLAIR [Suspect]
     Indication: ASTHMA
     Route: 048
     Dates: start: 20060101, end: 20070101
  4. COLECALCIFEROL [Suspect]
     Route: 048
     Dates: start: 20030101, end: 20070101

REACTIONS (4)
  - DENTAL CARIES [None]
  - ENAMEL ANOMALY [None]
  - PARAESTHESIA [None]
  - TOOTHACHE [None]
